FAERS Safety Report 9519047 (Version 1)
Quarter: 2013Q3

REPORT INFORMATION
  Report Type: Spontaneous
  Country: CN (occurrence: None)
  Receive Date: 20130910
  Receipt Date: 20130910
  Transmission Date: 20140515
  Serious: Yes (Death)
  Sender: FDA-Public Use
  Company Number: 2013P1019186

PATIENT
  Age: 64 Year
  Sex: Male

DRUGS (3)
  1. CEFUROXIME [Suspect]
     Indication: PRODUCTIVE COUGH
     Route: 042
  2. ETHANOL [Suspect]
     Route: 048
  3. 5% GLUCOSE IN SODIUM CHLORIDE [Concomitant]

REACTIONS (4)
  - Flushing [None]
  - Hyperhidrosis [None]
  - Asthenia [None]
  - Coronary artery disease [None]
